FAERS Safety Report 14265006 (Version 1)
Quarter: 2017Q4

REPORT INFORMATION
  Report Type: Spontaneous
  Country: US (occurrence: US)
  Receive Date: 20171208
  Receipt Date: 20171208
  Transmission Date: 20180321
  Serious: No
  Sender: FDA-Public Use
  Company Number: US-NOVOPROD-526371

PATIENT
  Age: 95 Year
  Sex: Female

DRUGS (1)
  1. NOVOLIN 70/30 [Suspect]
     Active Substance: INSULIN HUMAN
     Indication: TYPE 2 DIABETES MELLITUS
     Dosage: 12 UNITS AM; 10 UNITS PM
     Route: 058
     Dates: start: 2014

REACTIONS (4)
  - Blood glucose decreased [Recovered/Resolved]
  - Diabetes mellitus inadequate control [Not Recovered/Not Resolved]
  - Visual impairment [Not Recovered/Not Resolved]
  - Neuropathy peripheral [Not Recovered/Not Resolved]

NARRATIVE: CASE EVENT DATE: 2014
